FAERS Safety Report 18724563 (Version 1)
Quarter: 2021Q1

REPORT INFORMATION
  Report Type: Spontaneous
  Country: US (occurrence: US)
  Receive Date: 20210111
  Receipt Date: 20210111
  Transmission Date: 20210419
  Serious: Yes (Hospitalization)
  Sender: FDA-Public Use
  Company Number: None

PATIENT
  Age: 79 Year
  Sex: Male
  Weight: 79 kg

DRUGS (1)
  1. APIXABAN (APIXABAN 2.5MG TAB) [Suspect]
     Active Substance: APIXABAN
     Indication: ATRIAL FIBRILLATION
     Route: 048
     Dates: start: 20181004

REACTIONS (5)
  - Anaemia [None]
  - Packed red blood cell transfusion [None]
  - Cellulitis [None]
  - Iron deficiency anaemia [None]
  - Sepsis [None]

NARRATIVE: CASE EVENT DATE: 20201218
